FAERS Safety Report 8471085 (Version 2)
Quarter: 2012Q4

REPORT INFORMATION
  Report Type: 
  Country: US (occurrence: US)
  Receive Date: 20120322
  Receipt Date: 20121010
  Transmission Date: 20130627
  Serious: Yes (Hospitalization)
  Sender: FDA-Public Use
  Company Number: US-BAYER-2012-024544

PATIENT
  Age: 33 Year
  Sex: Female
  Weight: 82.54 kg

DRUGS (6)
  1. YAZ [Suspect]
     Indication: ACNE
     Dosage: UNK
     Dates: start: 200709, end: 2008
  2. YAZ [Suspect]
     Indication: MENSTRUAL CYCLE MANAGEMENT
  3. YASMIN [Suspect]
     Indication: ACNE
     Dosage: UNK
     Dates: start: 200709, end: 2008
  4. YASMIN [Suspect]
     Indication: MENSTRUAL CYCLE MANAGEMENT
  5. OCELLA [Suspect]
     Indication: ACNE
     Dosage: UNK
     Dates: start: 2007, end: 2008
  6. OCELLA [Suspect]
     Indication: MENSTRUAL CYCLE MANAGEMENT

REACTIONS (7)
  - Cholecystitis infective [None]
  - Cholelithiasis [None]
  - Pain [None]
  - General physical health deterioration [None]
  - Injury [None]
  - Emotional distress [None]
  - Anxiety [None]
